FAERS Safety Report 8318154-3 (Version None)
Quarter: 2012Q2

REPORT INFORMATION
  Report Type: 
  Country: None (occurrence: None)
  Receive Date: 20120427
  Receipt Date: 20120416
  Transmission Date: 20120825
  Serious: Yes (Death)
  Sender: FDA-Public Use
  Company Number: ES-ROCHE-1059857

PATIENT
  Age: 45 Year
  Sex: Male

DRUGS (8)
  1. KEPPRA [Suspect]
     Indication: PRODUCT USED FOR UNKNOWN INDICATION
     Route: 048
     Dates: start: 20120204, end: 20120207
  2. KLACID (SPAIN) [Suspect]
     Indication: PNEUMONIA
     Dosage: CLARITROMYCIN (KLACID UNIDIA)
     Route: 048
     Dates: start: 20120207, end: 20120209
  3. DEXAMETHASONE [Suspect]
     Indication: PRODUCT USED FOR UNKNOWN INDICATION
     Dates: start: 20120209, end: 20120228
  4. SULFAMETHOXAZOLE AND TRIMETHOPRIM [Suspect]
     Indication: PNEUMONIA
     Route: 042
     Dates: start: 20120203, end: 20120215
  5. GANCICLOVIR SODIUM [Suspect]
     Indication: PRODUCT USED FOR UNKNOWN INDICATION
     Dosage: LYOFILIZED POWDER FOR INJECTION
     Route: 042
     Dates: start: 20120211, end: 20120215
  6. FLUCONAZOLE [Suspect]
     Indication: PNEUMONIA
     Route: 048
     Dates: start: 20120206, end: 20120207
  7. TARGOCID [Suspect]
     Indication: PRODUCT USED FOR UNKNOWN INDICATION
     Route: 042
     Dates: start: 20120208, end: 20120216
  8. MAXIPIME [Suspect]
     Indication: PNEUMONIA
     Route: 042
     Dates: start: 20120203, end: 20120208

REACTIONS (1)
  - BONE MARROW FAILURE [None]
